FAERS Safety Report 5760691-X (Version None)
Quarter: 2008Q2

REPORT INFORMATION
  Report Type: 
  Country: None (occurrence: None)
  Receive Date: 20080530
  Receipt Date: 20080521
  Transmission Date: 20081010
  Serious: Yes (Death)
  Sender: FDA-Public Use
  Company Number: WAES 0805USA04687

PATIENT
  Age: 55 Year
  Sex: Male

DRUGS (3)
  1. INDOCIN [Suspect]
     Indication: BACK PAIN
     Dosage: 75 MG/TID PO
     Route: 048
  2. INDOCIN [Suspect]
     Indication: PLEURITIC PAIN
     Dosage: 75 MG/TID PO
     Route: 048
  3. MORPHINESO4 [Concomitant]

REACTIONS (6)
  - DEPRESSED LEVEL OF CONSCIOUSNESS [None]
  - GASTRIC ULCER HAEMORRHAGE [None]
  - GASTRIC ULCER PERFORATION [None]
  - GASTROINTESTINAL FISTULA [None]
  - HYPOVOLAEMIC SHOCK [None]
  - VENTRICULAR FIBRILLATION [None]
